FAERS Safety Report 12708062 (Version 1)
Quarter: 2016Q3

REPORT INFORMATION
  Report Type: Report from Study
  Country: US (occurrence: US)
  Receive Date: 20160901
  Receipt Date: 20160901
  Transmission Date: 20161109
  Serious: Yes (Hospitalization)
  Sender: FDA-Public Use
  Company Number: US-ARIAD-2013US002685

PATIENT
  Age: 77 Year
  Sex: Male
  Weight: 82 kg

DRUGS (4)
  1. CEPHALOSPORIN C [Concomitant]
     Active Substance: CEPHALOSPORIN C
     Indication: INFECTION
     Dosage: 500 MG, BID
  2. ALLOPURINOL. [Concomitant]
     Active Substance: ALLOPURINOL
     Indication: BLOOD URIC ACID INCREASED
     Dosage: 300 MG, QD
  3. FINASTERIDE. [Concomitant]
     Active Substance: FINASTERIDE
     Indication: BENIGN PROSTATIC HYPERPLASIA
     Dosage: 5 MG, QD
  4. ICLUSIG [Suspect]
     Active Substance: PONATINIB
     Indication: CHRONIC MYELOID LEUKAEMIA
     Dosage: 45 MG, QD
     Route: 048
     Dates: start: 20130915

REACTIONS (1)
  - White blood cell count increased [Recovered/Resolved]

NARRATIVE: CASE EVENT DATE: 20130927
